FAERS Safety Report 12700392 (Version 1)
Quarter: 2016Q3

REPORT INFORMATION
  Report Type: Spontaneous
  Country: US (occurrence: US)
  Receive Date: 20160830
  Receipt Date: 20160830
  Transmission Date: 20161109
  Serious: No
  Sender: FDA-Public Use
  Company Number: US-SA-2016SA119735

PATIENT
  Age: 40 Year
  Sex: Male
  Weight: 110.9 kg

DRUGS (8)
  1. TEGRETOL [Concomitant]
     Active Substance: CARBAMAZEPINE
     Dates: start: 20140211
  2. COUMADIN [Concomitant]
     Active Substance: WARFARIN SODIUM
     Dates: start: 20140211
  3. DIPHENHYDRAMINE. [Concomitant]
     Active Substance: DIPHENHYDRAMINE
     Dates: start: 20160115
  4. EPIPEN [Concomitant]
     Active Substance: EPINEPHRINE
     Dates: start: 20160115
  5. NORMAL SALINE [Concomitant]
     Active Substance: SODIUM CHLORIDE
     Dates: start: 20160115
  6. FABRAZYME [Suspect]
     Active Substance: AGALSIDASE BETA
     Indication: FABRY^S DISEASE
     Route: 041
  7. LISINOPRIL. [Concomitant]
     Active Substance: LISINOPRIL
     Dates: start: 20150227
  8. CELEXA [Concomitant]
     Active Substance: CITALOPRAM HYDROBROMIDE
     Dates: start: 20150227

REACTIONS (1)
  - Infusion site extravasation [Unknown]
